APPROVED DRUG PRODUCT: PREDNISONE
Active Ingredient: PREDNISONE
Strength: 20MG
Dosage Form/Route: TABLET;ORAL
Application: A212629 | Product #003 | TE Code: AB
Applicant: POINTVIEW HOLDINGS LLC
Approved: Dec 5, 2023 | RLD: No | RS: No | Type: RX